FAERS Safety Report 19251975 (Version 1)
Quarter: 2021Q2

REPORT INFORMATION
  Report Type: Spontaneous
  Country: GB (occurrence: GB)
  Receive Date: 20210513
  Receipt Date: 20210513
  Transmission Date: 20210717
  Serious: Yes (Other)
  Sender: FDA-Public Use
  Company Number: GB-TEVA-2021-GB-1910692

PATIENT
  Age: 66 Year
  Sex: Male
  Weight: 107 kg

DRUGS (44)
  1. ALENDRONIC ACID [Concomitant]
     Active Substance: ALENDRONIC ACID
  2. CETIRIZINE [Concomitant]
     Active Substance: CETIRIZINE HYDROCHLORIDE
  3. FLURBIPROFEN. [Concomitant]
     Active Substance: FLURBIPROFEN
  4. FUROSEMIDE. [Concomitant]
     Active Substance: FUROSEMIDE
  5. VENTOLIN [Concomitant]
     Active Substance: ALBUTEROL SULFATE
  6. COLECALCIFEROL [Concomitant]
     Active Substance: CHOLECALCIFEROL
  7. SPIRIVA [Concomitant]
     Active Substance: TIOTROPIUM BROMIDE MONOHYDRATE
  8. VIRAMUNE [Concomitant]
     Active Substance: NEVIRAPINE
  9. ASPIRIN. [Concomitant]
     Active Substance: ASPIRIN
  10. CACIT [Concomitant]
  11. DOXYCYCLINE. [Concomitant]
     Active Substance: DOXYCYCLINE
  12. EPHEDRINE. [Concomitant]
     Active Substance: EPHEDRINE
  13. FENOFIBRATE. [Concomitant]
     Active Substance: FENOFIBRATE
  14. PREDNISOLONE. [Concomitant]
     Active Substance: PREDNISOLONE
  15. VALERIAN ROOT [Concomitant]
     Active Substance: VALERIAN
  16. ACYCLOVIR. [Concomitant]
     Active Substance: ACYCLOVIR
  17. ATORVASTATIN [Concomitant]
     Active Substance: ATORVASTATIN
  18. FLUCONAZOLE. [Concomitant]
     Active Substance: FLUCONAZOLE
  19. ALLOPURINOL. [Concomitant]
     Active Substance: ALLOPURINOL
  20. CAVERJECT [Concomitant]
     Active Substance: ALPROSTADIL
  21. CITALOPRAM [Concomitant]
     Active Substance: CITALOPRAM HYDROBROMIDE
  22. CLOPIDOGREL [Concomitant]
     Active Substance: CLOPIDOGREL BISULFATE
  23. EZETIMIBE. [Concomitant]
     Active Substance: EZETIMIBE
  24. LACTULOSE. [Concomitant]
     Active Substance: LACTULOSE
  25. PANTOPRAZOLE [Concomitant]
     Active Substance: PANTOPRAZOLE
  26. PROCHLORPERAZINE. [Concomitant]
     Active Substance: PROCHLORPERAZINE
  27. SALBUTAMOL [Concomitant]
     Active Substance: ALBUTEROL
  28. TAMSULOSIN [Concomitant]
     Active Substance: TAMSULOSIN
  29. DOXAZOSIN [Concomitant]
     Active Substance: DOXAZOSIN MESYLATE
  30. GABAPENTIN. [Concomitant]
     Active Substance: GABAPENTIN
  31. GTN [Concomitant]
     Active Substance: NITROGLYCERIN
  32. NYSTAN [Concomitant]
     Active Substance: NYSTATIN
  33. UNIPHYLLIN CONTINUS [Concomitant]
     Active Substance: THEOPHYLLINE ANHYDROUS
  34. VALSARTAN. [Concomitant]
     Active Substance: VALSARTAN
  35. ARIPIPRAZOLE. [Suspect]
     Active Substance: ARIPIPRAZOLE
     Indication: PSYCHOTIC DISORDER
     Dosage: 5 MILLIGRAM DAILY; AT NIGHT
     Route: 048
     Dates: start: 20210319, end: 20210419
  36. FOSTAIR NEXTHALER [Concomitant]
     Active Substance: BECLOMETHASONE DIPROPIONATE\FORMOTEROL FUMARATE
  37. MIRABEGRON [Concomitant]
     Active Substance: MIRABEGRON
  38. NACSYS [Concomitant]
  39. SENNA [Concomitant]
     Active Substance: SENNA LEAF\SENNOSIDES\SENNOSIDES A AND B
  40. DESCOVY [Concomitant]
     Active Substance: EMTRICITABINE\TENOFOVIR ALAFENAMIDE FUMARATE
  41. MST CONTINUS [Concomitant]
     Active Substance: MORPHINE SULFATE
  42. PSYLLIUM [Concomitant]
     Active Substance: PLANTAGO SEED
  43. SODIUM PICOSULFATE [Concomitant]
     Active Substance: SODIUM PICOSULFATE
  44. ZOPICLONE [Concomitant]
     Active Substance: ZOPICLONE

REACTIONS (2)
  - Tardive dyskinesia [Not Recovered/Not Resolved]
  - Dystonia [Not Recovered/Not Resolved]

NARRATIVE: CASE EVENT DATE: 20210412
